FAERS Safety Report 18876967 (Version 2)
Quarter: 2021Q1

REPORT INFORMATION
  Report Type: Report from Study
  Country: US (occurrence: US)
  Receive Date: 20210211
  Receipt Date: 20210227
  Transmission Date: 20210420
  Serious: Yes (Other)
  Sender: FDA-Public Use
  Company Number: NVSC2021US025939

PATIENT
  Age: 63 Year
  Sex: Female

DRUGS (1)
  1. ENTRESTO [Suspect]
     Active Substance: SACUBITRIL\VALSARTAN
     Indication: CARDIAC FAILURE
     Dosage: 1 DF (24/26 MG), BID
     Route: 065
     Dates: start: 201906

REACTIONS (8)
  - Influenza [Not Recovered/Not Resolved]
  - Sinusitis [Not Recovered/Not Resolved]
  - Breast cancer [Unknown]
  - Nasopharyngitis [Not Recovered/Not Resolved]
  - Blood pressure decreased [Not Recovered/Not Resolved]
  - Rhinorrhoea [Not Recovered/Not Resolved]
  - Dizziness [Recovered/Resolved]
  - Cardiac dysfunction [Not Recovered/Not Resolved]

NARRATIVE: CASE EVENT DATE: 201912
